FAERS Safety Report 7422955-3 (Version None)
Quarter: 2011Q2

REPORT INFORMATION
  Report Type: 
  Country: None (occurrence: None)
  Receive Date: 20110411
  Receipt Date: 20110401
  Transmission Date: 20111010
  Serious: Yes (Hospitalization)
  Sender: FDA-Public Use
  Company Number: 2011SP014851

PATIENT
  Age: 33 Year
  Sex: Male

DRUGS (34)
  1. DEXAMETHASONE ACETATE [Suspect]
     Indication: PRODUCT USED FOR UNKNOWN INDICATION
     Dosage: 20 MG; QD; PO
     Route: 048
     Dates: start: 20101126, end: 20101129
  2. NOXAFIL [Suspect]
     Indication: ANTIFUNGAL PROPHYLAXIS
     Dosage: 200 MG; TID;
     Dates: start: 20101202, end: 20101206
  3. VANCOMYCIN [Suspect]
     Indication: PYREXIA
     Dosage: 1 GM; BID; IV
     Route: 042
     Dates: start: 20101202, end: 20101207
  4. VFEND [Suspect]
     Indication: ASPERGILLOSIS
     Dosage: 400 MG; BID; IV
     Route: 042
     Dates: start: 20101206, end: 20101218
  5. MOPRAL [Concomitant]
  6. BRICANYL [Concomitant]
  7. IDARAC [Concomitant]
  8. FASTURTEC [Concomitant]
  9. CIPROFLOXACIN [Suspect]
     Indication: PYREXIA
     Dosage: 1 DF; BID; IV
     Route: 042
     Dates: start: 20101202, end: 20101207
  10. PRIMAXIN [Suspect]
     Indication: PYREXIA
     Dosage: 1 GM; TID; IV
     Route: 042
     Dates: start: 20101202, end: 20101208
  11. NICORETTE [Suspect]
     Indication: NICOTINE DEPENDENCE
     Dosage: 6 DF; QD; INH
     Route: 055
     Dates: start: 20101127, end: 20101210
  12. PIPERACILLIN AND TAZOBACTAM [Suspect]
     Indication: INFECTION
     Dosage: 1 DF; QID; IV
     Route: 042
     Dates: start: 20101126, end: 20101201
  13. IMODIUM [Concomitant]
  14. ZOPHREN [Concomitant]
  15. ATROVENT [Concomitant]
  16. TARGOCID [Suspect]
     Indication: PYREXIA
     Dosage: 1 DF; BID; IV
     Route: 042
     Dates: start: 20101207, end: 20101227
  17. GENTAMICINE (OTHER MFR) (GENTAMICIN) [Suspect]
     Indication: ANTIBIOTIC THERAPY
     Dosage: 2 DF; TID; PO
     Route: 048
     Dates: start: 20101126, end: 20101216
  18. SYMBICORT [Suspect]
     Indication: PRODUCT USED FOR UNKNOWN INDICATION
     Dosage: 1 DF; BID; INH
     Route: 055
     Dates: start: 20101202
  19. SERESTA [Concomitant]
  20. CLAVENTIN (CLAVENTIN /00973701/) [Suspect]
     Indication: PYREXIA
     Dosage: 1 DF; TID; IV
     Route: 042
     Dates: start: 20101207, end: 20101227
  21. VESANOID [Suspect]
     Indication: ACUTE MYELOID LEUKAEMIA
     Dosage: 90 MG; QD; PO
     Route: 048
     Dates: start: 20101126, end: 20101215
  22. COLISTIN SULFATE (OTHER MFR) (COLISTIN SULFATE) [Suspect]
     Indication: GASTROINTESTINAL DISORDER
     Dosage: 2 DF; TID; PO
     Route: 048
     Dates: start: 20101126, end: 20101216
  23. SPIRIVA [Suspect]
     Indication: PRODUCT USED FOR UNKNOWN INDICATION
     Dosage: 1 DF; QD;
  24. SOLIAN [Concomitant]
  25. CYTARABINE [Suspect]
     Indication: ACUTE MYELOID LEUKAEMIA
     Dosage: 400 MG; QD; IV
     Route: 042
     Dates: start: 20101126, end: 20101202
  26. EMEND [Suspect]
     Indication: PRODUCT USED FOR UNKNOWN INDICATION
     Dosage: 80 MG; QD; PO
     Route: 048
     Dates: start: 20101126, end: 20101206
  27. EFFEXOR [Concomitant]
  28. NICOPATCH [Concomitant]
  29. NOCOTINEL (NICOTINE) [Concomitant]
  30. ATARAX [Concomitant]
  31. IDARUBICIN HCL [Suspect]
     Indication: ACUTE MYELOID LEUKAEMIA
     Dosage: 24 MG; QOD; IV
     Route: 042
     Dates: start: 20101126, end: 20101130
  32. ZOVIRAX [Suspect]
     Indication: MOUTH ULCERATION
     Dosage: 1 DF; TID; IV
     Route: 042
     Dates: start: 20101202, end: 20101210
  33. MORPHINE [Concomitant]
  34. CLOTTAFACT (HUMAN FIBRINOGEN) [Concomitant]

REACTIONS (7)
  - RASH [None]
  - MOUTH ULCERATION [None]
  - ASPERGILLOSIS [None]
  - LUNG CONSOLIDATION [None]
  - BRONCHOPULMONARY ASPERGILLOSIS [None]
  - ZYGOMYCOSIS [None]
  - PYREXIA [None]
